FAERS Safety Report 13069618 (Version 1)
Quarter: 2016Q4

REPORT INFORMATION
  Report Type: Spontaneous
  Country: RO (occurrence: RO)
  Receive Date: 20161228
  Receipt Date: 20161228
  Transmission Date: 20170207
  Serious: Yes (Life-Threatening, Hospitalization)
  Sender: FDA-Public Use
  Company Number: RO-IMPAX LABORATORIES, INC-2016-IPXL-02430

PATIENT
  Age: 4 Year
  Sex: Female
  Weight: 17 kg

DRUGS (1)
  1. ALBENZA [Suspect]
     Active Substance: ALBENDAZOLE
     Indication: PARASITIC GASTROENTERITIS
     Dosage: 0.4 G/10 ML, UNK
     Route: 048
     Dates: start: 20150828, end: 20150828

REACTIONS (4)
  - Vomiting [Recovered/Resolved]
  - Product use issue [Unknown]
  - Loss of consciousness [Recovered/Resolved]
  - Dehydration [Recovered/Resolved]

NARRATIVE: CASE EVENT DATE: 20150828
